FAERS Safety Report 15900988 (Version 1)
Quarter: 2019Q1

REPORT INFORMATION
  Report Type: Spontaneous
  Country: DE (occurrence: DE)
  Receive Date: 20190201
  Receipt Date: 20190201
  Transmission Date: 20190417
  Serious: Yes (Other)
  Sender: FDA-Public Use
  Company Number: DE-ALLERGAN-1902150US

PATIENT
  Age: 70 Year
  Sex: Female

DRUGS (2)
  1. BOTOX [Suspect]
     Active Substance: ONABOTULINUMTOXINA
     Indication: URGE INCONTINENCE
     Dosage: 100 UNITS, SINGLE
     Route: 043
     Dates: start: 20181119, end: 20181119
  2. BOTOX [Suspect]
     Active Substance: ONABOTULINUMTOXINA
     Indication: HYPERTONIC BLADDER

REACTIONS (3)
  - Urinary retention [Not Recovered/Not Resolved]
  - Urinary retention [Recovered/Resolved with Sequelae]
  - Product administered at inappropriate site [Unknown]

NARRATIVE: CASE EVENT DATE: 20181120
